FAERS Safety Report 24271205 (Version 1)
Quarter: 2024Q3

REPORT INFORMATION
  Report Type: Spontaneous
  Country: US (occurrence: US)
  Receive Date: 20240831
  Receipt Date: 20240831
  Transmission Date: 20241017
  Serious: No
  Sender: ABBVIE
  Company Number: US-ABBVIE-5900728

PATIENT
  Sex: Male

DRUGS (1)
  1. SKYRIZI [Suspect]
     Active Substance: RISANKIZUMAB-RZAA
     Indication: Product used for unknown indication
     Route: 058

REACTIONS (9)
  - Influenza like illness [Unknown]
  - Vomiting [Unknown]
  - Burning sensation [Unknown]
  - Pruritus [Unknown]
  - Pain in extremity [Unknown]
  - Pain [Unknown]
  - Skin exfoliation [Unknown]
  - Skin erosion [Unknown]
  - Weight decreased [Unknown]

NARRATIVE: CASE EVENT DATE: 20240801
